FAERS Safety Report 7967769-0 (Version None)
Quarter: 2011Q4

REPORT INFORMATION
  Report Type: 
  Country: None (occurrence: None)
  Receive Date: 20111209
  Receipt Date: 20111129
  Transmission Date: 20120403
  Serious: Yes (Hospitalization)
  Sender: FDA-Public Use
  Company Number: US-BAYER-201039671NA

PATIENT
  Age: 49 Year
  Sex: Female
  Weight: 66.213 kg

DRUGS (3)
  1. YASMIN [Suspect]
     Route: 048
     Dates: start: 20050101, end: 20050701
  2. IMITREX [Concomitant]
  3. MOTRIN [Concomitant]

REACTIONS (1)
  - DEEP VEIN THROMBOSIS [None]
